FAERS Safety Report 16152333 (Version 2)
Quarter: 2019Q2

REPORT INFORMATION
  Report Type: Spontaneous
  Country: JP (occurrence: JP)
  Receive Date: 20190403
  Receipt Date: 20190412
  Transmission Date: 20190711
  Serious: Yes (Other)
  Sender: FDA-Public Use
  Company Number: JP-GLAXOSMITHKLINE-JP2019JPN056296

PATIENT

DRUGS (1)
  1. FLUTIDE [Suspect]
     Active Substance: FLUTICASONE PROPIONATE
     Dosage: UNK
     Route: 055

REACTIONS (3)
  - Ill-defined disorder [Unknown]
  - Tracheostomy [Unknown]
  - Intercepted product administration error [Unknown]
